FAERS Safety Report 9789136 (Version 2)
Quarter: 2014Q1

REPORT INFORMATION
  Report Type: Spontaneous
  Country: US (occurrence: US)
  Receive Date: 20131230
  Receipt Date: 20140211
  Transmission Date: 20141002
  Serious: Yes (Hospitalization)
  Sender: FDA-Public Use
  Company Number: US-B.I. PHARMACEUTICALS,INC./RIDGEFIELD-2013-BI-43714BP

PATIENT
  Sex: Male
  Weight: 110.68 kg

DRUGS (12)
  1. PRADAXA [Suspect]
     Indication: ATRIAL FIBRILLATION
     Dosage: 300 MG
     Route: 048
     Dates: start: 20110830, end: 20120121
  2. PLAVIX [Concomitant]
     Dosage: 75 MG
     Route: 048
  3. LIPITOR [Concomitant]
     Dosage: 20 MG
     Route: 048
     Dates: start: 1998
  4. LASIX [Concomitant]
     Dosage: 20 MG
     Route: 048
     Dates: start: 1998
  5. DOXAZOSIN [Concomitant]
     Dosage: 8 MG
  6. ASPIRIN [Concomitant]
     Dosage: 162 MG
     Route: 048
  7. COZAAR [Concomitant]
     Dosage: 100 MG
     Route: 048
     Dates: start: 2003, end: 2013
  8. ACTOS [Concomitant]
     Dosage: 30 MG
     Route: 048
     Dates: start: 1998
  9. METOPROLOL [Concomitant]
     Dosage: 25 MG
     Route: 048
  10. MULTIVITAMIN [Concomitant]
     Route: 048
  11. VITAMIN E [Concomitant]
     Dosage: 400 U
  12. ISRADIPINE [Concomitant]
     Dosage: 20 MG
     Route: 048

REACTIONS (2)
  - Lower gastrointestinal haemorrhage [Unknown]
  - Haemorrhagic anaemia [Unknown]
